FAERS Safety Report 4852090-X (Version None)
Quarter: 2005Q4

REPORT INFORMATION
  Report Type: 
  Country: None (occurrence: None)
  Receive Date: 20051209
  Receipt Date: 20051201
  Transmission Date: 20060501
  Serious: No
  Sender: FDA-Public Use
  Company Number: HQWYE827705DEC05

PATIENT
  Sex: 0

DRUGS (1)
  1. TYGACIL [Suspect]
     Indication: PNEUMONIA

REACTIONS (2)
  - PNEUMONIA ASPIRATION [None]
  - VOMITING [None]
